FAERS Safety Report 18632847 (Version 2)
Quarter: 2021Q1

REPORT INFORMATION
  Report Type: Spontaneous
  Country: FR (occurrence: FR)
  Receive Date: 20201218
  Receipt Date: 20210106
  Transmission Date: 20210419
  Serious: Yes (Other)
  Sender: FDA-Public Use
  Company Number: FR-ACCORD-211048

PATIENT
  Age: 48 Year
  Sex: Female
  Weight: 74 kg

DRUGS (4)
  1. OXALIPLATIN HOSPIRA [Suspect]
     Active Substance: OXALIPLATIN
     Indication: ADENOCARCINOMA OF COLON
     Dosage: STRENGTH: 5 MG / ML
     Route: 042
     Dates: start: 20200128, end: 20200615
  2. FLUOROURACIL ACCORD [Suspect]
     Active Substance: FLUOROURACIL
     Indication: ADENOCARCINOMA OF COLON
     Dosage: 400 MG / METER SQUARE IN IVL THEN 2400 MG / METER SQUARE OVER 48 HOURS IN DIFFUSER, DOSE: 1
     Route: 042
     Dates: start: 20200128, end: 20200615
  3. AVASTIN [Suspect]
     Active Substance: BEVACIZUMAB
     Indication: ADENOCARCINOMA OF COLON
     Dosage: STRENGTH: 25 MG / ML
     Route: 042
     Dates: start: 20200210, end: 20200615
  4. OPTIMIZETTE [Suspect]
     Active Substance: DESOGESTREL
     Indication: ENDOMETRIOSIS
     Dosage: STRENGTH: 75 MICROGRAMS
     Route: 048
     Dates: end: 20200323

REACTIONS (5)
  - Gastrointestinal disorder [Not Recovered/Not Resolved]
  - Hot flush [Not Recovered/Not Resolved]
  - Pulmonary embolism [Recovering/Resolving]
  - Neuropathy peripheral [Not Recovered/Not Resolved]
  - Asthenia [Not Recovered/Not Resolved]

NARRATIVE: CASE EVENT DATE: 20200210
